FAERS Safety Report 5207865-4 (Version None)
Quarter: 2007Q1

REPORT INFORMATION
  Report Type: 
  Country: None (occurrence: None)
  Receive Date: 20070112
  Receipt Date: 20070103
  Transmission Date: 20070707
  Serious: Yes (Hospitalization)
  Sender: FDA-Public Use
  Company Number: GB-PFIZER INC-2007002317

PATIENT
  Age: 72 Year
  Sex: Male

DRUGS (7)
  1. CORTEF [Suspect]
     Route: 042
     Dates: start: 20060822, end: 20060907
  2. AMLODIPINE [Concomitant]
  3. ASPIRIN [Concomitant]
     Dosage: DAILY DOSE:75MG
     Route: 048
     Dates: end: 20060820
  4. CEFTAZIDIME [Concomitant]
     Dosage: DAILY DOSE:500MG
     Route: 042
     Dates: start: 20060820, end: 20060822
  5. HYDROCORTISONE [Concomitant]
     Dosage: DAILY DOSE:30MG
     Route: 048
     Dates: end: 20060819
  6. IMIPENEM [Concomitant]
     Route: 042
     Dates: start: 20060823, end: 20060903
  7. LANSOPRAZOLE [Concomitant]
     Dosage: DAILY DOSE:15MG
     Route: 048
     Dates: end: 20060820

REACTIONS (1)
  - HAEMATEMESIS [None]
